FAERS Safety Report 9659655 (Version 1)
Quarter: 2013Q4

REPORT INFORMATION
  Report Type: Spontaneous
  Country: CN (occurrence: CN)
  Receive Date: 20131031
  Receipt Date: 20131031
  Transmission Date: 20140711
  Serious: Yes (Life-Threatening)
  Sender: FDA-Public Use
  Company Number: CN-BAYER-2013-131650

PATIENT
  Age: 70 Year
  Sex: Male
  Weight: 49 kg

DRUGS (1)
  1. IOPROMIDE [Suspect]
     Indication: IMAGING PROCEDURE
     Dosage: 80 ML, ONCE
     Route: 041
     Dates: start: 20120301, end: 20120302

REACTIONS (3)
  - Cyanosis [Recovering/Resolving]
  - Eyelid oedema [Recovering/Resolving]
  - Hypoaesthesia [Recovering/Resolving]
